FAERS Safety Report 19256546 (Version 1)
Quarter: 2021Q2

REPORT INFORMATION
  Report Type: Report from Study
  Country: US (occurrence: US)
  Receive Date: 20210514
  Receipt Date: 20210514
  Transmission Date: 20210717
  Serious: No
  Sender: FDA-Public Use
  Company Number: NVSC2021US100511

PATIENT
  Age: 51 Year
  Sex: Female

DRUGS (1)
  1. KESIMPTA [Suspect]
     Active Substance: OFATUMUMAB
     Indication: MULTIPLE SCLEROSIS
     Dosage: 20 MG(20MG/0.4ML)(ONCE A WEEK FOR 3 WEEKS, ONE WEEK BREAK, BEGIN ONCE MONTHLY DOSE)
     Route: 058
     Dates: start: 20210426

REACTIONS (9)
  - Lacrimation increased [Unknown]
  - Eye pain [Unknown]
  - Neck pain [Unknown]
  - Chills [Unknown]
  - Dry mouth [Unknown]
  - Palpitations [Unknown]
  - Tremor [Unknown]
  - Headache [Unknown]
  - Asthenopia [Unknown]

NARRATIVE: CASE EVENT DATE: 20210426
